FAERS Safety Report 6965879-8 (Version None)
Quarter: 2010Q3

REPORT INFORMATION
  Report Type: 
  Country: None (occurrence: None)
  Receive Date: 20100903
  Receipt Date: 20100824
  Transmission Date: 20110219
  Serious: Yes (Other)
  Sender: FDA-Public Use
  Company Number: JP-NOVOPROD-313750

PATIENT
  Age: 71 Year
  Sex: Female

DRUGS (2)
  1. VICTOZA HIKACHU INJECTION [Suspect]
     Indication: TYPE 2 DIABETES MELLITUS
     Dosage: 0.6 MG, QD
     Dates: start: 20100608, end: 20100715
  2. VICTOZA HIKACHU INJECTION [Suspect]
     Dosage: 0.6 MG, QD
     Dates: start: 20100720, end: 20100819

REACTIONS (1)
  - PANCREATITIS [None]
